FAERS Safety Report 5406966-5 (Version None)
Quarter: 2007Q3

REPORT INFORMATION
  Report Type: 
  Country: None (occurrence: None)
  Receive Date: 20070803
  Receipt Date: 20070803
  Transmission Date: 20080115
  Serious: Yes (Hospitalization)
  Sender: FDA-Public Use
  Company Number: None

PATIENT
  Age: 80 Year
  Sex: Male
  Weight: 68.0396 kg

DRUGS (2)
  1. ZOLOFT [Suspect]
     Indication: DISEASE RECURRENCE
     Dosage: DAILY PO
     Route: 048
  2. ZOLOFT [Suspect]
     Indication: MAJOR DEPRESSION
     Dosage: DAILY PO
     Route: 048

REACTIONS (1)
  - MYOCLONUS [None]
